FAERS Safety Report 7537289-6 (Version None)
Quarter: 2011Q2

REPORT INFORMATION
  Report Type: 
  Country: None (occurrence: None)
  Receive Date: 20110609
  Receipt Date: 20110603
  Transmission Date: 20111010
  Serious: Yes (Hospitalization, Other)
  Sender: FDA-Public Use
  Company Number: US-PFIZER INC-2011062844

PATIENT
  Sex: Female

DRUGS (12)
  1. SOMA [Concomitant]
     Indication: SCOLIOSIS
     Dosage: UNK
     Dates: start: 20050101, end: 20100101
  2. SOMA [Concomitant]
     Indication: BACK PAIN
  3. HYDROCODONE [Concomitant]
     Indication: SCOLIOSIS
     Dosage: UNK
     Dates: start: 20060101, end: 20080101
  4. CHANTIX [Suspect]
     Indication: SMOKING CESSATION THERAPY
     Dosage: 1 MG, UNK
     Dates: start: 20070627, end: 20070930
  5. PREVACID [Concomitant]
     Indication: GASTROOESOPHAGEAL REFLUX DISEASE
     Dosage: UNK
     Dates: start: 20040101, end: 20100101
  6. PREVACID [Concomitant]
     Indication: HELICOBACTER INFECTION
  7. HYDROCODONE [Concomitant]
     Indication: BACK PAIN
  8. XANAX [Concomitant]
     Indication: ANXIETY
     Dosage: UNK
  9. DARVOCET [Concomitant]
     Indication: SCOLIOSIS
     Dosage: UNK
     Dates: start: 20050101, end: 20100101
  10. DARVOCET [Concomitant]
     Indication: BACK PAIN
  11. TOPROL-XL [Concomitant]
     Indication: HYPERTENSION
     Dosage: UNK
  12. AMBIEN [Concomitant]
     Indication: INSOMNIA
     Dosage: UNK
     Dates: start: 20050101, end: 20100101

REACTIONS (8)
  - CONVULSION [None]
  - LOSS OF CONSCIOUSNESS [None]
  - AGGRESSION [None]
  - TREMOR [None]
  - INSOMNIA [None]
  - DEPRESSION [None]
  - ANXIETY [None]
  - SUICIDAL IDEATION [None]
